FAERS Safety Report 4559064-7 (Version None)
Quarter: 2005Q1

REPORT INFORMATION
  Report Type: 
  Country: None (occurrence: None)
  Receive Date: 20050121
  Receipt Date: 20050121
  Transmission Date: 20050727
  Serious: Yes (Hospitalization)
  Sender: FDA-Public Use
  Company Number: None

PATIENT
  Age: 69 Year
  Sex: Male
  Weight: 136.5327 kg

DRUGS (2)
  1. CEFTRIAXONE [Suspect]
     Dosage: 1 MG   Q 24 HOURS   INTRAVENOU
     Route: 042
     Dates: start: 20050108, end: 20050113
  2. AZITHROMYCIN [Suspect]
     Dosage: 500 MG   Q 24 HOURS   INTRAVENOU
     Route: 042
     Dates: start: 20050108, end: 20050113

REACTIONS (1)
  - DIARRHOEA [None]
